FAERS Safety Report 15756625 (Version 1)
Quarter: 2018Q4

REPORT INFORMATION
  Report Type: Spontaneous
  Country: US (occurrence: US)
  Receive Date: 20181206
  Receipt Date: 20181206
  Transmission Date: 20190205
  Serious: No
  Sender: FDA-Public Use
  Company Number: None

PATIENT
  Age: 65 Year
  Sex: Male

DRUGS (7)
  1. LISINOPRIL. [Concomitant]
     Active Substance: LISINOPRIL
  2. CYCLOBENZAPR [Concomitant]
     Active Substance: CYCLOBENZAPRINE
  3. FINASTERIDE. [Concomitant]
     Active Substance: FINASTERIDE
  4. PREDNISONE. [Concomitant]
     Active Substance: PREDNISONE
  5. YONSA [Suspect]
     Active Substance: ABIRATERONE ACETATE
     Indication: PROSTATE CANCER
     Route: 048
     Dates: start: 20180913
  6. MELOXICAM. [Concomitant]
     Active Substance: MELOXICAM
  7. ATORVASTATIN [Suspect]
     Active Substance: ATORVASTATIN

REACTIONS (2)
  - Clostridial sepsis [None]
  - Therapy cessation [None]

NARRATIVE: CASE EVENT DATE: 20180924
